FAERS Safety Report 5362575-8 (Version None)
Quarter: 2007Q2

REPORT INFORMATION
  Report Type: 
  Country: None (occurrence: None)
  Receive Date: 20070619
  Receipt Date: 20070611
  Transmission Date: 20071010
  Serious: Yes (Other)
  Sender: FDA-Public Use
  Company Number: GB-BOEHRINGER INGELHEIM PHARMACEUTICALS, INC.-2006-BP-13388YA

PATIENT
  Age: 67 Year
  Sex: Male

DRUGS (4)
  1. TAMSULOSIN HCL [Suspect]
     Route: 065
  2. CYCLOPENTOLATE HCL [Concomitant]
     Indication: PREOPERATIVE CARE
  3. KETOROLAC TROMETHAMINE [Concomitant]
     Indication: PREOPERATIVE CARE
  4. PHENYLEPHRINE [Concomitant]
     Indication: PREOPERATIVE CARE

REACTIONS (3)
  - IRIDOCELE [None]
  - IRIS DISORDER [None]
  - MIOSIS [None]
